FAERS Safety Report 16809787 (Version 1)
Quarter: 2019Q3

REPORT INFORMATION
  Report Type: Spontaneous
  Country: CN (occurrence: CN)
  Receive Date: 20190916
  Receipt Date: 20190916
  Transmission Date: 20191005
  Serious: No
  Sender: FDA-Public Use
  Company Number: CN-B.BRAUN MEDICAL INC.-2074481

PATIENT
  Age: 78 Year
  Sex: Male
  Weight: 46 kg

DRUGS (4)
  1. COMPOUND AMINO ACID INJECTION [Suspect]
     Active Substance: AMINO ACIDS
     Route: 041
     Dates: start: 20190807, end: 20190807
  2. POTASSIUM CHLORIDE. [Suspect]
     Active Substance: POTASSIUM CHLORIDE
     Route: 041
     Dates: start: 20190807, end: 20190807
  3. NUTRILIPID I.V. FAT EMULSION [Suspect]
     Active Substance: SOYBEAN OIL
     Indication: NUTRITIONAL SUPPLEMENTATION
     Route: 041
     Dates: start: 20190807, end: 20190807
  4. ALANYL GLUTAMINE INJECTION [Concomitant]
     Route: 041
     Dates: start: 20190807, end: 20190807

REACTIONS (3)
  - Chills [Recovered/Resolved]
  - Infusion site reaction [Recovered/Resolved]
  - Pyrexia [Recovered/Resolved]
